FAERS Safety Report 6999898-2 (Version None)
Quarter: 2010Q3

REPORT INFORMATION
  Report Type: 
  Country: None (occurrence: None)
  Receive Date: 20100920
  Receipt Date: 20091020
  Transmission Date: 20110219
  Serious: No
  Sender: FDA-Public Use
  Company Number: US-ASTRAZENECA-2009SE21507

PATIENT
  Age: 54 Year
  Sex: Male

DRUGS (1)
  1. SEROQUEL XR [Suspect]
     Route: 048
     Dates: start: 20080101

REACTIONS (3)
  - ASTHMA [None]
  - BRONCHITIS [None]
  - MUSCLE TWITCHING [None]
